FAERS Safety Report 4553014-5 (Version None)
Quarter: 2005Q1

REPORT INFORMATION
  Report Type: 
  Country: None (occurrence: None)
  Receive Date: 20050113
  Receipt Date: 20041230
  Transmission Date: 20050727
  Serious: Yes (Other)
  Sender: FDA-Public Use
  Company Number: 2005S1000001

PATIENT
  Age: 22 Year
  Sex: Male

DRUGS (5)
  1. CUBICIN [Suspect]
     Indication: BACTERIAL PYELONEPHRITIS
     Dosage: 6 MG/KG; Q24H; IV
     Route: 042
     Dates: start: 20040101, end: 20040101
  2. DOXYCYCLINE [Concomitant]
  3. CEFEPIME [Concomitant]
  4. METRONIDAZOLE [Concomitant]
  5. VANCOMYCIN [Concomitant]

REACTIONS (3)
  - ENTEROCOCCAL BACTERAEMIA [None]
  - ENTEROCOCCAL INFECTION [None]
  - ESCHERICHIA BACTERAEMIA [None]
